FAERS Safety Report 12623069 (Version 1)
Quarter: 2016Q3

REPORT INFORMATION
  Report Type: Spontaneous
  Country: US (occurrence: US)
  Receive Date: 20160804
  Receipt Date: 20160804
  Transmission Date: 20161109
  Serious: No
  Sender: FDA-Public Use
  Company Number: US-WATSON-2015-23402

PATIENT
  Sex: Female
  Weight: 75 kg

DRUGS (1)
  1. LOW-OGESTREL [Suspect]
     Active Substance: ETHINYL ESTRADIOL\NORGESTREL
     Indication: VON WILLEBRAND^S DISEASE
     Dosage: UNK, UNKNOWN
     Route: 048

REACTIONS (3)
  - Drug ineffective [Not Recovered/Not Resolved]
  - Therapeutic response changed [Not Recovered/Not Resolved]
  - Metrorrhagia [Not Recovered/Not Resolved]
